FAERS Safety Report 15354658 (Version 1)
Quarter: 2018Q4

REPORT INFORMATION
  Report Type: Other
  Country: DE (occurrence: DE)
  Receive Date: 20180906
  Receipt Date: 20180906
  Transmission Date: 20190204
  Serious: Yes (Death, Congenital Anomaly, Other)
  Sender: FDA-Public Use
  Company Number: DE-MACLEODS PHARMACEUTICALS US LTD-MAC2018016490

PATIENT

DRUGS (7)
  1. CANDESARTAN. [Suspect]
     Active Substance: CANDESARTAN
     Indication: HYPERTENSION
     Dosage: 16 MILLIGRAM, QD, (0. - 4.4. GESTATIONAL WEEK )
     Route: 064
     Dates: start: 20171002, end: 20171103
  2. PAROXETIN [Suspect]
     Active Substance: PAROXETINE HYDROCHLORIDE
     Indication: DEPRESSION
     Dosage: 30 MILLIGRAM, QD, 1 {TRIMESTER}, (0. - 4.4. GESTATIONAL WEEK )
     Route: 064
     Dates: start: 20171002, end: 20171103
  3. L-THYROXINE SODIUM [Concomitant]
     Active Substance: LEVOTHYROXINE SODIUM
     Indication: AUTOIMMUNE THYROIDITIS
     Dosage: UNK (0. - 11.5. GESTATIONAL WEEK )
     Route: 064
     Dates: start: 20171002, end: 20171223
  4. ESCITALOPRAM [Suspect]
     Active Substance: ESCITALOPRAM OXALATE
     Indication: DEPRESSION
     Dosage: 220 MILLIGRAM, QD, 1 {TRIMESTER} , 4.4. - 11.5. GESTATIONAL WEEK, (20MG/D)
     Route: 064
     Dates: start: 20171103, end: 20171223
  5. NEPRESOL (DIHYDRALAZINE SULFATE) [Suspect]
     Active Substance: DIHYDRALAZINE SULFATE
     Indication: HYPERTENSION
     Dosage: 25 MILLIGRAM, QD, 1 {TRIMESTER},  (4.4. - 11.5. GESTATIONAL WEEK )
     Route: 064
     Dates: start: 20171103, end: 20171223
  6. CYTOTEC [Concomitant]
     Active Substance: MISOPROSTOL
     Indication: ABORTION INDUCED
     Dosage: UNK (11. - 11.5. GESTATIONAL WEEK )
     Route: 064
     Dates: start: 20171218, end: 20171223
  7. LEVETIRACETAM. [Suspect]
     Active Substance: LEVETIRACETAM
     Indication: EPILEPSY
     Dosage: 1500 MILLIGRAM, QD, 1 {TRIMESTER}, (0. - 11.5. GESTATIONAL WEEK)
     Route: 064
     Dates: start: 20171002, end: 20171223

REACTIONS (2)
  - Anencephaly [Fatal]
  - Foetal exposure during pregnancy [Unknown]
